FAERS Safety Report 15170944 (Version 3)
Quarter: 2018Q4

REPORT INFORMATION
  Report Type: Spontaneous
  Country: US (occurrence: US)
  Receive Date: 20180720
  Receipt Date: 20181203
  Transmission Date: 20190204
  Serious: Yes (Other)
  Sender: FDA-Public Use
  Company Number: US-SA-2018SA191048

PATIENT
  Sex: Female

DRUGS (10)
  1. TOPOTECAN [Concomitant]
     Active Substance: TOPOTECAN HYDROCHLORIDE
  2. CYCLOPHOSPHAMIDE. [Concomitant]
     Active Substance: CYCLOPHOSPHAMIDE
  3. SARGRAMOSTIM [Suspect]
     Active Substance: SARGRAMOSTIM
     Indication: NEUROBLASTOMA
     Dosage: 250 MCG/M2
     Route: 058
  4. DINUTUXIMAB [Suspect]
     Active Substance: DINUTUXIMAB
     Indication: NEUROBLASTOMA
     Dosage: 17.5 MG/M2
     Route: 041
  5. NADIROXISAN [Suspect]
     Active Substance: NADIFLOXACIN
     Indication: NEUROBLASTOMA
     Route: 058
  6. CISPLATIN;ETOPOSIDE [Concomitant]
  7. MELPHALAN. [Concomitant]
     Active Substance: MELPHALAN
  8. CYCLOPHOSPHAMIDE;DOXORUBICIN;VINCRISTINE [Concomitant]
  9. INTERLEUKIN-2 [Suspect]
     Active Substance: ALDESLEUKIN
     Indication: NEUROBLASTOMA
     Dosage: 1000000 MILLION UNITS/M2
     Route: 058
  10. BUSULFAN. [Concomitant]
     Active Substance: BUSULFAN

REACTIONS (4)
  - Febrile neutropenia [Unknown]
  - Bone marrow failure [Unknown]
  - Pain [Unknown]
  - Decreased appetite [Unknown]
